FAERS Safety Report 13985881 (Version 1)
Quarter: 2017Q3

REPORT INFORMATION
  Report Type: Spontaneous
  Country: US (occurrence: US)
  Receive Date: 20170919
  Receipt Date: 20170919
  Transmission Date: 20171128
  Serious: No
  Sender: FDA-Public Use
  Company Number: US-PFIZER INC-2017401364

PATIENT
  Age: 52 Year
  Sex: Female

DRUGS (5)
  1. MINOXIDIL. [Suspect]
     Active Substance: MINOXIDIL
     Indication: RHEUMATOID ARTHRITIS
     Dosage: UNK
  2. ANTHRALIN [Suspect]
     Active Substance: ANTHRALIN
     Indication: RHEUMATOID ARTHRITIS
     Dosage: UNK
  3. SQUARIC ACID [Suspect]
     Active Substance: SQUARIC ACID
     Indication: RHEUMATOID ARTHRITIS
     Dosage: UNK
  4. METHOTREXATE SODIUM. [Suspect]
     Active Substance: METHOTREXATE SODIUM
     Indication: RHEUMATOID ARTHRITIS
     Dosage: UNK
  5. ELIDEL [Suspect]
     Active Substance: PIMECROLIMUS
     Indication: RHEUMATOID ARTHRITIS
     Dosage: UNK

REACTIONS (1)
  - Drug ineffective [Unknown]
